FAERS Safety Report 15996131 (Version 1)
Quarter: 2019Q1

REPORT INFORMATION
  Report Type: Spontaneous
  Country: US (occurrence: US)
  Receive Date: 20190129
  Receipt Date: 20190129
  Transmission Date: 20190418
  Serious: No
  Sender: FDA-Public Use
  Company Number: None

PATIENT

DRUGS (4)
  1. CARBOPLATIN. [Suspect]
     Active Substance: CARBOPLATIN
     Dates: start: 20180125, end: 20180530
  2. DOXORUBICIN HYDROCHLORIDE. [Suspect]
     Active Substance: DOXORUBICIN HYDROCHLORIDE
     Dates: end: 20180321
  3. TAXOL [Suspect]
     Active Substance: PACLITAXEL
     Dates: end: 20180703
  4. CYCLOPHOSPHAMIDE. [Suspect]
     Active Substance: CYCLOPHOSPHAMIDE
     Dates: end: 20180321

REACTIONS (9)
  - Postoperative wound complication [None]
  - Seroma [None]
  - Postoperative wound infection [None]
  - Haemoglobin decreased [None]
  - Fatigue [None]
  - Dysuria [None]
  - Laboratory test abnormal [None]
  - Thrombocytopenia [None]
  - Diarrhoea [None]
